FAERS Safety Report 6092251-8 (Version None)
Quarter: 2009Q1

REPORT INFORMATION
  Report Type: 
  Country: None (occurrence: None)
  Receive Date: 20090225
  Receipt Date: 20090223
  Transmission Date: 20090719
  Serious: Yes (Hospitalization)
  Sender: FDA-Public Use
  Company Number: A0769786A

PATIENT
  Age: 53 Year
  Sex: Female

DRUGS (8)
  1. TYKERB [Suspect]
     Indication: BREAST CANCER
     Dosage: 1250MG PER DAY
     Route: 048
     Dates: start: 20090216
  2. XELODA [Concomitant]
  3. EFFEXOR [Concomitant]
  4. REGLAN [Concomitant]
  5. DEXAMETHASONE [Concomitant]
  6. WARFARIN [Concomitant]
  7. AMBIEN [Concomitant]
  8. ZOFRAN [Concomitant]

REACTIONS (1)
  - CONVULSION [None]
